FAERS Safety Report 6498935-1 (Version None)
Quarter: 2009Q4

REPORT INFORMATION
  Report Type: 
  Country: None (occurrence: None)
  Receive Date: 20091127
  Receipt Date: 20090401
  Transmission Date: 20100525
  Serious: Yes (Hospitalization)
  Sender: FDA-Public Use
  Company Number: 283557

PATIENT
  Age: 50 Year
  Sex: Male

DRUGS (10)
  1. NOVOLOG [Suspect]
     Indication: TYPE 1 DIABETES MELLITUS
     Dosage: SUBCUTAN.-PUMP
     Route: 058
  2. LISINOPRIL [Concomitant]
  3. PLAVIX [Concomitant]
  4. LEVOXYL [Concomitant]
  5. GEMFIBROZIL [Concomitant]
  6. MULTIPLE VITAMINS (ASCORBIC ACID, ERGOCALCIFEROL, FOLIC ACID, RETINOL, [Concomitant]
  7. FISH OIL (FISH OIL) [Concomitant]
  8. VITAMIN D NOS (VITAMIN D NOS) [Concomitant]
  9. VITAMIN E /00110501/ (TOCOPHEROL) [Concomitant]
  10. CALCIUM (CALCIUM) [Concomitant]

REACTIONS (5)
  - DEVICE MALFUNCTION [None]
  - DIABETIC KETOACIDOSIS [None]
  - DRUG INEFFECTIVE [None]
  - HYPERGLYCAEMIA [None]
  - WRONG TECHNIQUE IN DRUG USAGE PROCESS [None]
